FAERS Safety Report 6546247-X (Version None)
Quarter: 2010Q1

REPORT INFORMATION
  Report Type: 
  Country: None (occurrence: None)
  Receive Date: 20100122
  Receipt Date: 20100108
  Transmission Date: 20100710
  Serious: No
  Sender: FDA-Public Use
  Company Number: US-BAYER-200943632NA

PATIENT
  Age: 46 Year
  Sex: Female
  Weight: 95 kg

DRUGS (1)
  1. AVELOX [Suspect]
     Indication: EAR INFECTION
     Dates: start: 20091207, end: 20091216

REACTIONS (7)
  - ABDOMINAL PAIN [None]
  - DIARRHOEA [None]
  - EAR INFECTION [None]
  - GASTRIC DISORDER [None]
  - GENERALISED ERYTHEMA [None]
  - PRURITUS [None]
  - VULVOVAGINAL MYCOTIC INFECTION [None]
